FAERS Safety Report 6857680-0 (Version None)
Quarter: 2010Q3

REPORT INFORMATION
  Report Type: 
  Country: None (occurrence: None)
  Receive Date: 20100719
  Receipt Date: 20100709
  Transmission Date: 20110219
  Serious: Yes (Life-Threatening, Hospitalization)
  Sender: FDA-Public Use
  Company Number: DE-WATSON-2010-07513

PATIENT

DRUGS (1)
  1. CIPROFLOXACIN HCL [Suspect]
     Indication: EYE INFLAMMATION
     Dosage: 500 MG, UNK
     Route: 048
     Dates: start: 20100429, end: 20100509

REACTIONS (2)
  - RENAL FAILURE ACUTE [None]
  - RENAL TUBULAR DISORDER [None]
